FAERS Safety Report 7444951-2 (Version None)
Quarter: 2011Q2

REPORT INFORMATION
  Report Type: 
  Country: None (occurrence: None)
  Receive Date: 20110426
  Receipt Date: 20110426
  Transmission Date: 20111010
  Serious: Yes (Life-Threatening, Hospitalization, Disabling, Congenital Anomaly)
  Sender: FDA-Public Use
  Company Number: None

PATIENT
  Sex: Male
  Weight: 70.3075 kg

DRUGS (2)
  1. LAMICTAL [Suspect]
     Dosage: 200MG
  2. ZYPREXA [Suspect]
     Dosage: 20MG

REACTIONS (1)
  - DRUG DEPENDENCE [None]
